FAERS Safety Report 15405713 (Version 2)
Quarter: 2018Q4

REPORT INFORMATION
  Report Type: Spontaneous
  Country: US (occurrence: US)
  Receive Date: 20180920
  Receipt Date: 20181003
  Transmission Date: 20190204
  Serious: No
  Sender: FDA-Public Use
  Company Number: US-TAKEDA-2018TUS027345

PATIENT
  Sex: Female
  Weight: 77.1 kg

DRUGS (5)
  1. TRINTELLIX [Suspect]
     Active Substance: VORTIOXETINE HYDROBROMIDE
     Dosage: 10 MG, QD
     Route: 048
     Dates: start: 20180625, end: 20180807
  2. AMITRIPTINE [Concomitant]
     Active Substance: AMITRIPTYLINE
     Indication: ECZEMA
     Dosage: 25 MG, QD
     Route: 065
     Dates: start: 20180410
  3. TRINTELLIX [Suspect]
     Active Substance: VORTIOXETINE HYDROBROMIDE
     Indication: DEPRESSION
     Dosage: 5 MG, QD
     Route: 048
  4. SYNTHROID [Concomitant]
     Active Substance: LEVOTHYROXINE SODIUM
     Indication: HYPERTHYROIDISM
     Dosage: 80 UG, UNK
     Route: 065
     Dates: start: 20180309
  5. ZOLOFT [Concomitant]
     Active Substance: SERTRALINE HYDROCHLORIDE
     Indication: MUSCLE SPASMS
     Dosage: UNK UNK, TID
     Route: 065
     Dates: start: 20180410, end: 20180610

REACTIONS (4)
  - Autoimmune thyroiditis [Unknown]
  - Hyperthyroidism [Unknown]
  - Weight increased [Recovered/Resolved]
  - Insomnia [Unknown]
